FAERS Safety Report 6434810-6 (Version None)
Quarter: 2009Q4

REPORT INFORMATION
  Report Type: 
  Country: None (occurrence: None)
  Receive Date: 20091109
  Receipt Date: 20091109
  Transmission Date: 20100525
  Serious: Yes (Other)
  Sender: FDA-Public Use
  Company Number: None

PATIENT
  Age: 9 Year
  Sex: Female
  Weight: 27.2158 kg

DRUGS (1)
  1. AZITHROMYCIN [Suspect]
     Indication: BRONCHITIS
     Dosage: 2TSP DAY 1 1TSP FOR DAYS 2-5 ONCE A DAY PO
     Route: 048
     Dates: start: 20091031, end: 20091105

REACTIONS (3)
  - ABDOMINAL PAIN UPPER [None]
  - HEADACHE [None]
  - PAIN [None]
